FAERS Safety Report 8158897-8 (Version None)
Quarter: 2012Q1

REPORT INFORMATION
  Report Type: 
  Country: None (occurrence: None)
  Receive Date: 20120223
  Receipt Date: 20120214
  Transmission Date: 20120608
  Serious: Yes (Disabling, Other)
  Sender: FDA-Public Use
  Company Number: GB-BRISTOL-MYERS SQUIBB COMPANY-16397812

PATIENT
  Age: 78 Year
  Sex: Female
  Weight: 89 kg

DRUGS (9)
  1. ONGLYZA [Suspect]
     Indication: DIABETES MELLITUS
     Route: 048
     Dates: start: 20111212, end: 20120117
  2. FUROSEMIDE [Concomitant]
  3. DILTIAZEM HCL [Concomitant]
  4. AMITRIPTYLINE HCL [Concomitant]
     Dosage: TABS
  5. DOXAZOSIN [Concomitant]
  6. ZOPICLONE [Concomitant]
  7. NEBIVOLOL [Concomitant]
     Dosage: TABS
     Route: 048
  8. LEVOTHYROXINE SODIUM [Concomitant]
  9. ASPIRIN [Concomitant]
     Dosage: FORMULATION-ENTERIC COATED

REACTIONS (7)
  - CONFUSIONAL STATE [None]
  - HEADACHE [None]
  - VISUAL IMPAIRMENT [None]
  - SLEEP DISORDER [None]
  - ALOPECIA [None]
  - AMNESIA [None]
  - GINGIVAL BLEEDING [None]
